FAERS Safety Report 5751566-0 (Version None)
Quarter: 2008Q2

REPORT INFORMATION
  Report Type: 
  Country: None (occurrence: None)
  Receive Date: 20080528
  Receipt Date: 20080519
  Transmission Date: 20081010
  Serious: Yes (Hospitalization, Other)
  Sender: FDA-Public Use
  Company Number: PHRM2008FR01509

PATIENT
  Sex: Male

DRUGS (10)
  1. VALSARTAN AND HYDROCHLOROTHIAZIDE [Suspect]
     Indication: HYPERTENSION
     Dosage: 1 DF, QD
     Route: 048
     Dates: end: 20080217
  2. LASILIX [Interacting]
     Dosage: 40 MG, QD
     Route: 042
     Dates: start: 20080215, end: 20080215
  3. FUROSEMIDE [Interacting]
     Dosage: 60 MG, QD
     Route: 048
     Dates: end: 20080210
  4. FUROSEMIDE [Interacting]
     Dosage: 40 MG, QD
     Route: 048
     Dates: start: 20080211, end: 20080213
  5. RISORDAN [Concomitant]
     Indication: CHEST PAIN
     Dosage: 2 MG, QD
     Route: 042
     Dates: start: 20080213, end: 20080215
  6. PLAVIX [Concomitant]
     Dosage: 75 MG, QD
     Route: 048
     Dates: start: 20080213
  7. ASPIRIN [Concomitant]
     Dosage: 75 MG, QD
     Route: 048
  8. CARVEDILOL [Concomitant]
     Indication: HYPERTENSION
     Dosage: 3.125 MG, BID
     Route: 048
  9. ZOCOR [Concomitant]
     Indication: DYSLIPIDAEMIA
     Dosage: 40 MG, QD
     Route: 048
  10. GLUCOPHAGE [Concomitant]
     Indication: TYPE 2 DIABETES MELLITUS
     Dosage: 500 MG, BID
     Route: 048

REACTIONS (3)
  - DRUG INTERACTION [None]
  - HYPONATRAEMIA [None]
  - MYOCARDIAL INFARCTION [None]
